FAERS Safety Report 7359231-3 (Version None)
Quarter: 2011Q1

REPORT INFORMATION
  Report Type: 
  Country: None (occurrence: None)
  Receive Date: 20110317
  Receipt Date: 20110303
  Transmission Date: 20110831
  Serious: Yes (Disabling, Other)
  Sender: FDA-Public Use
  Company Number: PHHO2009FR11874

PATIENT
  Sex: Male
  Weight: 72 kg

DRUGS (3)
  1. STI571/CGP57148B [Suspect]
     Indication: ACUTE LYMPHOCYTIC LEUKAEMIA
     Dosage: UNK
     Dates: start: 20071015, end: 20080324
  2. MORPHINE [Suspect]
  3. CORTICOSTEROIDS [Concomitant]

REACTIONS (14)
  - BONE PAIN [None]
  - EPSTEIN-BARR VIRUS INFECTION [None]
  - NAUSEA [None]
  - BLOOD BILIRUBIN INCREASED [None]
  - SOMNOLENCE [None]
  - OSTEOPOROSIS [None]
  - ERYTHEMA [None]
  - SKIN HYPERPIGMENTATION [None]
  - MUCOSAL INFLAMMATION [None]
  - PYREXIA [None]
  - LIVER FUNCTION TEST ABNORMAL [None]
  - ACUTE GRAFT VERSUS HOST DISEASE IN SKIN [None]
  - STAPHYLOCOCCAL INFECTION [None]
  - HICCUPS [None]
